FAERS Safety Report 14306534 (Version 2)
Quarter: 2018Q1

REPORT INFORMATION
  Report Type: Spontaneous
  Country: JP (occurrence: JP)
  Receive Date: 20171220
  Receipt Date: 20180102
  Transmission Date: 20180509
  Serious: Yes (Other)
  Sender: FDA-Public Use
  Company Number: JP-UCBSA-2017049189

PATIENT
  Age: 45 Year
  Sex: Male

DRUGS (3)
  1. DEPAKENE [Suspect]
     Active Substance: VALPROIC ACID
     Indication: PRODUCT USED FOR UNKNOWN INDICATION
     Dosage: 8 ML, UNK
     Route: 048
  2. E KEPPRA [Suspect]
     Active Substance: LEVETIRACETAM
     Indication: PRODUCT USED FOR UNKNOWN INDICATION
     Dosage: UNK
     Route: 048
  3. CARBAMAZEPINE. [Concomitant]
     Active Substance: CARBAMAZEPINE
     Indication: PRODUCT USED FOR UNKNOWN INDICATION

REACTIONS (1)
  - Epilepsy [Recovered/Resolved]
